FAERS Safety Report 8804839 (Version 2)
Quarter: 2012Q4

REPORT INFORMATION
  Report Type: 
  Country: US (occurrence: US)
  Receive Date: 20120924
  Receipt Date: 20121022
  Transmission Date: 20130627
  Serious: Yes (Other)
  Sender: FDA-Public Use
  Company Number: US-JNJFOC-20100803489

PATIENT
  Sex: Female

DRUGS (2)
  1. LEVAQUIN [Suspect]
     Indication: BRONCHITIS
     Route: 048
  2. LEVAQUIN [Suspect]
     Indication: BACTERIAL INFECTION
     Route: 048

REACTIONS (2)
  - Rotator cuff syndrome [Recovering/Resolving]
  - Rotator cuff syndrome [Recovering/Resolving]
